FAERS Safety Report 14452578 (Version 1)
Quarter: 2018Q1

REPORT INFORMATION
  Report Type: Spontaneous
  Country: HR (occurrence: HR)
  Receive Date: 20180129
  Receipt Date: 20180129
  Transmission Date: 20180509
  Serious: Yes (Hospitalization)
  Sender: FDA-Public Use
  Company Number: HR-JNJFOC-20180131582

PATIENT
  Age: 37 Year
  Sex: Male
  Weight: 70 kg

DRUGS (3)
  1. ANALGINE [Concomitant]
     Indication: SCIATICA
     Route: 048
  2. ZALDIAR [Suspect]
     Active Substance: ACETAMINOPHEN\TRAMADOL HYDROCHLORIDE
     Indication: SCIATICA
     Route: 048
  3. BRUFEN [Concomitant]
     Active Substance: IBUPROFEN
     Indication: SCIATICA
     Route: 048

REACTIONS (3)
  - Fall [Recovered/Resolved]
  - Dizziness [Recovering/Resolving]
  - Loss of consciousness [Recovering/Resolving]

NARRATIVE: CASE EVENT DATE: 20180103
